FAERS Safety Report 23276853 (Version 1)
Quarter: 2023Q4

REPORT INFORMATION
  Report Type: Other
  Country: None (occurrence: CA)
  Receive Date: 20231208
  Receipt Date: 20231208
  Transmission Date: 20240110
  Serious: Yes (Hospitalization)
  Sender: FDA-Public Use
  Company Number: CA-B.Braun Medical Inc.-2149143

PATIENT
  Age: 74 Year
  Sex: Female

DRUGS (1)
  1. METRONIDAZOLE [Suspect]
     Active Substance: METRONIDAZOLE
     Indication: Colitis ulcerative

REACTIONS (5)
  - Nystagmus [None]
  - Oscillopsia [None]
  - Balance disorder [None]
  - Neurotoxicity [None]
  - Off label use [None]
